FAERS Safety Report 17655397 (Version 1)
Quarter: 2020Q2

REPORT INFORMATION
  Report Type: Spontaneous
  Country: DE (occurrence: DE)
  Receive Date: 20200410
  Receipt Date: 20200410
  Transmission Date: 20200713
  Serious: Yes (Hospitalization)
  Sender: FDA-Public Use
  Company Number: DE-TEVA-2020-DE-1221662

PATIENT
  Age: 82 Year
  Sex: Female

DRUGS (14)
  1. DIGITOXIN [Concomitant]
     Active Substance: DIGITOXIN
     Dosage: 0.07 MG, 1-0-0-0, TABLETS
  2. ZOLPIDEM [Concomitant]
     Active Substance: ZOLPIDEM TARTRATE
     Dosage: 10 MG, 0-0-0-1
  3. DOXAZOSIN [Concomitant]
     Active Substance: DOXAZOSIN MESYLATE
     Dosage: 4 MG, 0-1-0-0, TABLETS
  4. METOPROLOL. [Concomitant]
     Active Substance: METOPROLOL
     Dosage: 47.5 MG, 1-0-1-0, TABLETS
  5. CALCIVIT D [Concomitant]
     Dosage: 0.01 | 600 MG, 1-0-0-0, EFFERVESCENT TABLETS
  6. LEVOTHYROXIN-NATRIUM [Concomitant]
     Active Substance: LEVOTHYROXINE SODIUM
     Dosage: 88 MICROGRAM, 1-0-0-0, TABLETS
  7. BUPRENORPHINE. [Suspect]
     Active Substance: BUPRENORPHINE
     Dosage: 0.01 MG / H, TUESDAY, PATCHES TRANSDERMALLY
     Route: 062
  8. APIXABAN [Suspect]
     Active Substance: APIXABAN
     Dosage: 5 MG, 1-0-1-0, TABLETS
  9. OPTIFEN [Concomitant]
     Active Substance: IBUPROFEN
     Dosage: NK MG, 1-0-0-0, TABLETS
  10. OMEPRAZOL [Concomitant]
     Active Substance: OMEPRAZOLE
     Dosage: 40 MG, 1-0-0-0, TABLETS
  11. MACROGOL [Concomitant]
     Active Substance: POLYETHYLENE GLYCOLS
     Dosage: NK MG, 1-0-0-0
  12. HCT [Concomitant]
     Active Substance: HYDROCHLOROTHIAZIDE
     Dosage: 12.5 MG, 1-0-0-0, TABLETS
  13. MIRTAZAPIN [Concomitant]
     Active Substance: MIRTAZAPINE
     Dosage: 15 MG, 0-0-1-0, TABLETS
  14. RAMIPRIL. [Concomitant]
     Active Substance: RAMIPRIL
     Dosage: 5 MG, 1-0-1-0, TABLETS

REACTIONS (2)
  - Haematochezia [Unknown]
  - General physical health deterioration [Unknown]
